FAERS Safety Report 21508319 (Version 3)
Quarter: 2022Q4

REPORT INFORMATION
  Report Type: Spontaneous
  Country: JP (occurrence: JP)
  Receive Date: 20221026
  Receipt Date: 20221130
  Transmission Date: 20230112
  Serious: Yes (Hospitalization, Other)
  Sender: FDA-Public Use
  Company Number: JP-DSJP-DSJ-2022-138164

PATIENT
  Age: 5 Decade
  Sex: Female

DRUGS (2)
  1. ENHERTU [Suspect]
     Active Substance: FAM-TRASTUZUMAB DERUXTECAN-NXKI
     Indication: HER2 positive breast cancer
     Dosage: UNK MG, ONCE EVERY 3 WK
     Route: 041
     Dates: start: 20221004, end: 20221004
  2. ENHERTU [Suspect]
     Active Substance: FAM-TRASTUZUMAB DERUXTECAN-NXKI
     Dosage: UNK MG, ONCE EVERY 3 WK
     Route: 041
     Dates: start: 20221031, end: 20221031

REACTIONS (3)
  - Pyrexia [Unknown]
  - Cough [Unknown]
  - Seizure [Unknown]
